FAERS Safety Report 11518680 (Version 7)
Quarter: 2016Q2

REPORT INFORMATION
  Report Type: Spontaneous
  Country: US (occurrence: US)
  Receive Date: 20150917
  Receipt Date: 20160427
  Transmission Date: 20160815
  Serious: Yes (Hospitalization)
  Sender: FDA-Public Use
  Company Number: US-ACTELION PHARMACEUTICALS US, INC.-A-US2015-118018

PATIENT
  Age: 69 Year
  Sex: Male

DRUGS (4)
  1. VELETRI [Suspect]
     Active Substance: EPOPROSTENOL
     Dosage: 6.5 NG/KG, PER MIN
     Route: 042
     Dates: start: 20150506
  2. ADCIRCA [Concomitant]
     Active Substance: TADALAFIL
  3. VELETRI [Suspect]
     Active Substance: EPOPROSTENOL
     Indication: PULMONARY ARTERIAL HYPERTENSION
     Dosage: 4 NG/KG, PER MIN
     Route: 042
     Dates: start: 20150326
  4. VELETRI [Suspect]
     Active Substance: EPOPROSTENOL
     Dosage: 10 UNK, UNK
     Route: 042
     Dates: start: 20150506

REACTIONS (18)
  - Device alarm issue [Unknown]
  - Pain in jaw [Unknown]
  - Palpitations [Unknown]
  - Oedema peripheral [Unknown]
  - Pain in extremity [Unknown]
  - Catheter site pruritus [Unknown]
  - Catheter site erythema [Unknown]
  - Pruritus [Unknown]
  - Dyspnoea exertional [Unknown]
  - Asthenia [Unknown]
  - Clostridium difficile infection [Unknown]
  - Cellulitis [Unknown]
  - Urticaria [Unknown]
  - Contusion [Unknown]
  - Headache [Unknown]
  - Joint swelling [Unknown]
  - Acne [Unknown]
  - Fluid retention [Unknown]
